FAERS Safety Report 15059700 (Version 3)
Quarter: 2019Q3

REPORT INFORMATION
  Report Type: Spontaneous
  Country: US (occurrence: US)
  Receive Date: 20180625
  Receipt Date: 20190719
  Transmission Date: 20191004
  Serious: Yes (Other)
  Sender: FDA-Public Use
  Company Number: US-SA-2018SA165004

PATIENT
  Age: 76 Year
  Sex: Female

DRUGS (5)
  1. ELIQUIS [Suspect]
     Active Substance: APIXABAN
  2. PRALUENT [Suspect]
     Active Substance: ALIROCUMAB
     Indication: BLOOD CHOLESTEROL
     Dosage: 75 MG, QOW
     Route: 058
     Dates: start: 201709
  3. PLAVIX [Concomitant]
     Active Substance: CLOPIDOGREL BISULFATE
  4. CORGARD [Concomitant]
     Active Substance: NADOLOL
  5. PRALUENT [Suspect]
     Active Substance: ALIROCUMAB
     Indication: HYPERLIPIDAEMIA

REACTIONS (6)
  - Pneumonia [Unknown]
  - Blood cholesterol decreased [Unknown]
  - Product quality issue [Unknown]
  - Diarrhoea [Unknown]
  - Product dose omission [Unknown]
  - Influenza like illness [Unknown]

NARRATIVE: CASE EVENT DATE: 2019
